FAERS Safety Report 4939879-3 (Version None)
Quarter: 2006Q1

REPORT INFORMATION
  Report Type: 
  Country: None (occurrence: None)
  Receive Date: 20060307
  Receipt Date: 20060217
  Transmission Date: 20060701
  Serious: Yes (Other)
  Sender: FDA-Public Use
  Company Number: 06-MIT00003

PATIENT
  Age: 62 Year
  Sex: Male

DRUGS (1)
  1. MITOMYCIN [Suspect]
     Indication: GLAUCOMA
     Dosage: 0.1 ML, SUBCONJUNCTIVAL
     Route: 057

REACTIONS (5)
  - CHOROIDAL DETACHMENT [None]
  - CORNEAL DEGENERATION [None]
  - INTRAOCULAR PRESSURE DECREASED [None]
  - THERAPY NON-RESPONDER [None]
  - UVEITIS [None]
